FAERS Safety Report 8052204-7 (Version None)
Quarter: 2012Q1

REPORT INFORMATION
  Report Type: 
  Country: None (occurrence: None)
  Receive Date: 20120118
  Receipt Date: 20120112
  Transmission Date: 20120608
  Serious: No
  Sender: FDA-Public Use
  Company Number: US-PFIZER INC-2012010302

PATIENT
  Sex: Female
  Weight: 70.295 kg

DRUGS (2)
  1. CELEBREX [Suspect]
     Indication: ARTHRITIS
     Dosage: 200 MG,DAILY
     Route: 048
  2. ENTOCORT EC [Concomitant]
     Indication: IRRITABLE BOWEL SYNDROME
     Dosage: 6 MG,DAILY
     Route: 048

REACTIONS (3)
  - SPONDYLITIS [None]
  - ROAD TRAFFIC ACCIDENT [None]
  - LIGAMENT SPRAIN [None]
